FAERS Safety Report 4785215-5 (Version None)
Quarter: 2005Q3

REPORT INFORMATION
  Report Type: 
  Country: None (occurrence: None)
  Receive Date: 20050929
  Receipt Date: 20050922
  Transmission Date: 20060218
  Serious: Yes (Death)
  Sender: FDA-Public Use
  Company Number: B0394776A

PATIENT
  Sex: 0

DRUGS (3)
  1. ALKERAN [Suspect]
     Indication: NEUROBLASTOMA
     Dosage: 45 MG/M2 / CYCLIC / INTRAVENOUS
     Route: 042
  2. ETOPOSIDE [Suspect]
     Indication: NEUROBLASTOMA
     Dosage: 40 MG/KG / CYCLIC / INTRAVENOUS
     Route: 042
  3. CARBOPLATIN [Suspect]
     Indication: NEUROBLASTOMA
     Dosage: 500 MG/M2 / CYCLIC / INTRAVENOUS
     Route: 042

REACTIONS (1)
  - ACUTE MYELOID LEUKAEMIA [None]
